FAERS Safety Report 5017207-5 (Version None)
Quarter: 2006Q2

REPORT INFORMATION
  Report Type: 
  Country: None (occurrence: None)
  Receive Date: 20060602
  Receipt Date: 20060523
  Transmission Date: 20061013
  Serious: Yes (Other)
  Sender: FDA-Public Use
  Company Number: FR-ABBOTT-06P-056-0333973-00

PATIENT
  Sex: Male

DRUGS (3)
  1. NORVIR [Suspect]
     Indication: HIV INFECTION
     Dates: start: 20050101
  2. FLUTICASONE+SALMETEROL MULTI DOSE POWDER INHALER [Suspect]
     Indication: BRONCHIAL HYPERACTIVITY
     Route: 055
     Dates: start: 20050101
  3. UNSPECIFIED ANTI VIRAL MEDICATION [Concomitant]
     Indication: DRUG USE FOR UNKNOWN INDICATION
     Dates: start: 20050101

REACTIONS (3)
  - AMYOTROPHY [None]
  - CUSHING'S SYNDROME [None]
  - DRUG INTERACTION [None]
